FAERS Safety Report 11746043 (Version 5)
Quarter: 2016Q4

REPORT INFORMATION
  Report Type: Spontaneous
  Country: JP (occurrence: JP)
  Receive Date: 20151117
  Receipt Date: 20161007
  Transmission Date: 20170206
  Serious: Yes (Life-Threatening)
  Sender: FDA-Public Use
  Company Number: PHJP2015JP020316

PATIENT
  Age: 74 Year
  Sex: Male
  Weight: 76 kg

DRUGS (21)
  1. COSENTYX [Suspect]
     Active Substance: SECUKINUMAB
     Indication: PSORIATIC ARTHROPATHY
     Dosage: 300 MG, QW
     Route: 058
     Dates: start: 20150702
  2. FAMOTIDINE. [Concomitant]
     Active Substance: FAMOTIDINE
     Indication: PRODUCT USED FOR UNKNOWN INDICATION
     Dosage: UNK
     Route: 065
  3. IFENPRODIL [Concomitant]
     Active Substance: IFENPRODIL
     Indication: PRODUCT USED FOR UNKNOWN INDICATION
     Dosage: UNK
     Route: 065
  4. INTEBAN [Concomitant]
     Active Substance: INDOMETHACIN
     Indication: PRODUCT USED FOR UNKNOWN INDICATION
     Dosage: UNK
     Route: 065
  5. LIPOVAS ^BANYU^ [Concomitant]
     Indication: PRODUCT USED FOR UNKNOWN INDICATION
     Dosage: UNK
     Route: 065
  6. COSENTYX [Suspect]
     Active Substance: SECUKINUMAB
     Indication: PSORIASIS
     Dosage: 300 MG, SINGLE DOSE IN 4 WEEKS
     Route: 058
     Dates: end: 20150928
  7. HUMIRA [Suspect]
     Active Substance: ADALIMUMAB
     Indication: PSORIATIC ARTHROPATHY
     Dosage: UNK
     Route: 058
     Dates: start: 20150515, end: 201507
  8. REMICADE [Suspect]
     Active Substance: INFLIXIMAB
     Indication: PSORIATIC ARTHROPATHY
     Dosage: UNK
     Route: 042
     Dates: start: 20140703
  9. BONALFA [Concomitant]
     Indication: PSORIATIC ARTHROPATHY
  10. DIART [Concomitant]
     Active Substance: AZOSEMIDE
     Indication: PRODUCT USED FOR UNKNOWN INDICATION
     Dosage: UNK
     Route: 065
  11. BONALFA [Concomitant]
     Indication: DERMATITIS PSORIASIFORM
     Dosage: QD
     Route: 062
     Dates: start: 20101206
  12. HIRUDOID [Concomitant]
     Active Substance: GLYCOSAMINOGLYCANS
     Indication: PSORIASIS
     Dosage: QD
     Route: 062
     Dates: start: 20101201
  13. VASOLAN [Concomitant]
     Active Substance: VERAPAMIL HYDROCHLORIDE
     Indication: PRODUCT USED FOR UNKNOWN INDICATION
     Dosage: UNK
     Route: 065
  14. MYSER [Concomitant]
     Active Substance: DIFLUPREDNATE
     Indication: DERMATITIS PSORIASIFORM
     Dosage: QD
     Route: 062
     Dates: start: 20101201
  15. MYSER [Concomitant]
     Active Substance: DIFLUPREDNATE
     Indication: PSORIATIC ARTHROPATHY
  16. HALFDIGOXIN [Concomitant]
     Active Substance: DIGOXIN
     Indication: PRODUCT USED FOR UNKNOWN INDICATION
     Dosage: UNK
     Route: 065
  17. MECOBALAMIN [Concomitant]
     Active Substance: METHYLCOBALAMIN
     Indication: PRODUCT USED FOR UNKNOWN INDICATION
     Dosage: UNK
     Route: 065
  18. LYRICA [Concomitant]
     Active Substance: PREGABALIN
     Indication: PRODUCT USED FOR UNKNOWN INDICATION
     Dosage: UNK
     Route: 065
  19. HIRUDOID [Concomitant]
     Active Substance: GLYCOSAMINOGLYCANS
     Indication: DRY SKIN
     Dosage: UNK
     Route: 062
     Dates: start: 20150702
  20. PRAZAXA [Concomitant]
     Active Substance: DABIGATRAN ETEXILATE MESYLATE
     Indication: PRODUCT USED FOR UNKNOWN INDICATION
     Dosage: UNK
     Route: 065
  21. ATENOLOL. [Concomitant]
     Active Substance: ATENOLOL
     Indication: PRODUCT USED FOR UNKNOWN INDICATION
     Dosage: UNK
     Route: 065

REACTIONS (4)
  - Lymphadenopathy [Unknown]
  - Dysphagia [Unknown]
  - Metastases to lymph nodes [Unknown]
  - Hypopharyngeal cancer [Unknown]

NARRATIVE: CASE EVENT DATE: 201508
